FAERS Safety Report 17189860 (Version 1)
Quarter: 2019Q4

REPORT INFORMATION
  Report Type: Spontaneous
  Country: SE (occurrence: SE)
  Receive Date: 20191223
  Receipt Date: 20191223
  Transmission Date: 20200122
  Serious: Yes (Hospitalization)
  Sender: FDA-Public Use
  Company Number: SE-TEVA-2019-SE-1155461

PATIENT
  Sex: Female

DRUGS (3)
  1. ATARAX [Suspect]
     Active Substance: HYDROXYZINE HYDROCHLORIDE
     Dosage: 200-300 MG ^STARTED THIS MORNING AND AT 12 OR LATER^
     Route: 048
     Dates: start: 20181013, end: 20181013
  2. ENALAPRIL [Suspect]
     Active Substance: ENALAPRIL
     Dosage: 400 MILLIGRAMS ^STARTED THIS MORNING AND AT 12 OR LATER^
     Route: 048
     Dates: start: 20181013, end: 20181013
  3. PROPAVAN [Suspect]
     Active Substance: PROPIOMAZINE
     Dosage: 1.2 GRAMS ^STARTED THIS MORNING AND AT 12 OR LATER^
     Route: 048
     Dates: start: 20181013, end: 20181013

REACTIONS (5)
  - Vomiting [Unknown]
  - Feeling drunk [Unknown]
  - Intentional self-injury [Unknown]
  - Depressed level of consciousness [Unknown]
  - Intentional overdose [Unknown]

NARRATIVE: CASE EVENT DATE: 20181013
